FAERS Safety Report 5460109-0 (Version None)
Quarter: 2007Q3

REPORT INFORMATION
  Report Type: 
  Country: None (occurrence: None)
  Receive Date: 20070919
  Receipt Date: 20070910
  Transmission Date: 20080115
  Serious: No
  Sender: FDA-Public Use
  Company Number: JP-ASTRAZENECA-2007AP05523

PATIENT
  Age: 26113 Day
  Sex: Male
  Weight: 60 kg

DRUGS (10)
  1. CRESTOR [Suspect]
     Indication: HYPERLIPIDAEMIA
     Route: 048
     Dates: start: 20070702, end: 20070730
  2. MEXITIL [Suspect]
     Indication: DIABETIC NEUROPATHY
     Route: 048
     Dates: start: 20010101
  3. MEXITIL [Suspect]
     Route: 048
     Dates: start: 20070702, end: 20070730
  4. MEXITIL [Suspect]
     Route: 048
     Dates: start: 20070811
  5. ACTOS [Suspect]
     Route: 048
     Dates: end: 20070730
  6. TANATRIL [Suspect]
     Indication: HYPERTENSION
     Route: 048
     Dates: start: 20070702, end: 20070730
  7. TANATRIL [Suspect]
     Route: 048
     Dates: start: 20070822
  8. ADALAT-SR [Concomitant]
     Indication: HYPERTENSION
     Route: 048
     Dates: start: 20010101
  9. ROHYPNOL [Concomitant]
     Indication: INSOMNIA
     Route: 048
     Dates: start: 20010101
  10. NOVORAPID [Concomitant]
     Indication: DIABETES MELLITUS
     Route: 058
     Dates: start: 20010101

REACTIONS (1)
  - HEPATIC FUNCTION ABNORMAL [None]
